FAERS Safety Report 22044229 (Version 1)
Quarter: 2023Q1

REPORT INFORMATION
  Report Type: Spontaneous
  Country: US (occurrence: None)
  Receive Date: 20230227
  Receipt Date: 20230227
  Transmission Date: 20230417
  Serious: Yes (Other)
  Sender: FDA-Public Use
  Company Number: None

PATIENT
  Age: 23 Year
  Weight: 47.25 kg

DRUGS (3)
  1. VYVANSE [Suspect]
     Active Substance: LISDEXAMFETAMINE DIMESYLATE
     Indication: Attention deficit hyperactivity disorder
     Route: 048
     Dates: start: 20230221
  2. VENLAFAXINE [Concomitant]
     Active Substance: VENLAFAXINE HYDROCHLORIDE
  3. TESTOSTERONE [Concomitant]
     Active Substance: TESTOSTERONE

REACTIONS (7)
  - Drug ineffective [None]
  - Stress [None]
  - Nausea [None]
  - Heart rate irregular [None]
  - Condition aggravated [None]
  - Decreased appetite [None]
  - Disturbance in attention [None]

NARRATIVE: CASE EVENT DATE: 20230221
